FAERS Safety Report 25367984 (Version 8)
Quarter: 2025Q3

REPORT INFORMATION
  Report Type: Spontaneous
  Country: US (occurrence: US)
  Receive Date: 20250528
  Receipt Date: 20250924
  Transmission Date: 20251020
  Serious: Yes (Other)
  Sender: PFIZER
  Company Number: US-PFIZER INC-PV202500061747

PATIENT
  Age: 63 Year
  Sex: Female

DRUGS (7)
  1. XELJANZ [Suspect]
     Active Substance: TOFACITINIB CITRATE
     Indication: Psoriatic arthropathy
     Dosage: 5 MG, 2X/DAY
     Route: 048
     Dates: start: 20250127, end: 20250207
  2. XELJANZ [Suspect]
     Active Substance: TOFACITINIB CITRATE
     Dosage: 5 MG, 2X/DAY
     Route: 048
     Dates: start: 20250221, end: 20250301
  3. XELJANZ [Suspect]
     Active Substance: TOFACITINIB CITRATE
     Dosage: 5 MG, 2X/DAY
     Route: 048
     Dates: start: 20250514
  4. XELJANZ [Suspect]
     Active Substance: TOFACITINIB CITRATE
     Dosage: 5 MG, 2X/DAY, 2 TIMES A DAY
     Route: 048
  5. ALEVE [Concomitant]
     Active Substance: NAPROXEN SODIUM
  6. PROLIA [Concomitant]
     Active Substance: DENOSUMAB
  7. TYLENOL [Concomitant]
     Active Substance: ACETAMINOPHEN
     Dosage: 3900 MG, DAILY (PER DAY DURING THE WAKING HOURS, LESS THAN 24 HOUR PERIOD)

REACTIONS (15)
  - Enchondromatosis [Unknown]
  - Tendonitis [Unknown]
  - Bursitis [Unknown]
  - Joint effusion [Unknown]
  - Cartilage injury [Unknown]
  - Blood calcium increased [Unknown]
  - Infection [Unknown]
  - Influenza [Unknown]
  - Condition aggravated [Not Recovered/Not Resolved]
  - Illness [Unknown]
  - Poor quality sleep [Unknown]
  - Bone pain [Not Recovered/Not Resolved]
  - Condition aggravated [Not Recovered/Not Resolved]
  - Arthralgia [Unknown]
  - Gait inability [Not Recovered/Not Resolved]

NARRATIVE: CASE EVENT DATE: 20250101
